FAERS Safety Report 19614790 (Version 2)
Quarter: 2021Q3

REPORT INFORMATION
  Report Type: Spontaneous
  Country: US (occurrence: US)
  Receive Date: 20210727
  Receipt Date: 20210823
  Transmission Date: 20211014
  Serious: Yes (Hospitalization)
  Sender: FDA-Public Use
  Company Number: US-PFIZER INC-2021885659

PATIENT
  Age: 47 Year
  Sex: Male
  Weight: 57.15 kg

DRUGS (1)
  1. METHYLPREDNISOLONE ACETATE. [Suspect]
     Active Substance: METHYLPREDNISOLONE ACETATE
     Dosage: UNK

REACTIONS (4)
  - White blood cell count decreased [Unknown]
  - Liver disorder [Unknown]
  - Bone marrow disorder [Unknown]
  - Toxicity to various agents [Unknown]

NARRATIVE: CASE EVENT DATE: 2021
